FAERS Safety Report 6610913 (Version 4)
Quarter: 2018Q3

REPORT INFORMATION
  Report Type: Spontaneous
  Country: DE (occurrence: DE)
  Receive Date: 20080410
  Receipt Date: 20180926
  Transmission Date: 20181010
  Serious: Yes (Hospitalization, Disabling, Other)
  Sender: FDA-Public Use
  Company Number: DE-SP-2008-01024

PATIENT
  Age: 72 Year
  Sex: Male

DRUGS (1)
  1. IMMUCYST [Suspect]
     Active Substance: BACILLUS CALMETTE-GUERIN SUBSTRAIN CONNAUGHT LIVE ANTIGEN
     Indication: BLADDER CANCER
     Dosage: DAILY DOSE TEXT : NOT REPORTED
     Route: 043
     Dates: start: 20040615, end: 200509

REACTIONS (5)
  - Dysuria [Recovered/Resolved]
  - Contracted bladder [Unknown]
  - Contracted bladder [Recovered/Resolved with Sequelae]
  - Urinary tract infection [Recovered/Resolved]
  - Micturition urgency [Recovered/Resolved]

NARRATIVE: CASE EVENT DATE: 200407
